FAERS Safety Report 5106408-3 (Version None)
Quarter: 2006Q3

REPORT INFORMATION
  Report Type: 
  Country: None (occurrence: None)
  Receive Date: 20060918
  Receipt Date: 20060731
  Transmission Date: 20061208
  Serious: Yes (Hospitalization)
  Sender: FDA-Public Use
  Company Number: FR-ROCHE-457728

PATIENT
  Age: 92 Year
  Sex: Female

DRUGS (12)
  1. ROCEPHIN [Suspect]
     Indication: PYELONEPHRITIS
     Dosage: REPORTED AS INJECTABLE SOLUTION.
     Route: 042
     Dates: start: 20060610, end: 20060611
  2. BACTRIM DS [Suspect]
     Indication: PYELONEPHRITIS
     Route: 048
     Dates: start: 20060612, end: 20060615
  3. XANAX [Suspect]
     Indication: ANXIETY
     Route: 048
     Dates: start: 20060613, end: 20060618
  4. CLAMOXYL [Suspect]
     Indication: PYELONEPHRITIS
     Route: 048
     Dates: start: 20060612, end: 20060613
  5. CIFLOX [Concomitant]
     Indication: PYELONEPHRITIS
     Route: 048
     Dates: start: 20060614
  6. OFLOCET [Concomitant]
     Indication: PYELONEPHRITIS
     Dosage: THE THERAPY WAS DISCONTINUED ON AN UNKNOWN DATE AND RESTARTED ON 12 JUNE 2006 (SAME DOSAGE).
     Route: 048
     Dates: start: 20060610, end: 20060614
  7. NEXIUM [Concomitant]
     Dosage: LONG-TERM TREATMENT.
  8. TRANSIPEG [Concomitant]
     Dosage: LONG-TERM TREATMENT.
  9. VITAMIN B-12 [Concomitant]
     Dosage: LONG-TERM TREATMENT. REPORTED AS VITAMINE B12.
  10. TOBREX EYE DROPS [Concomitant]
     Dosage: LONG-TERM TREATMENT.
     Route: 047
  11. PARACETAMOL [Concomitant]
     Dosage: LONG-TERM TREATMENT.
  12. OROKEN [Concomitant]
     Dates: start: 20060525, end: 20060604

REACTIONS (3)
  - CULTURE POSITIVE [None]
  - ERYTHEMA [None]
  - HENOCH-SCHONLEIN PURPURA [None]
